FAERS Safety Report 8248143-9 (Version None)
Quarter: 2012Q1

REPORT INFORMATION
  Report Type: 
  Country: None (occurrence: None)
  Receive Date: 20120330
  Receipt Date: 20120326
  Transmission Date: 20120608
  Serious: Yes (Other)
  Sender: FDA-Public Use
  Company Number: JP-VERTEX PHARMACEUTICALS INC.-AE-2012-002667

PATIENT
  Age: 66 Year
  Sex: Female

DRUGS (10)
  1. TELAVIC (TELAPREVIR) [Suspect]
     Route: 048
     Dates: start: 20120214, end: 20120219
  2. TELAVIC (TELAPREVIR) [Suspect]
     Route: 048
     Dates: start: 20120220
  3. MOTILIUM [Concomitant]
  4. PEG-INTRON [Concomitant]
     Route: 058
     Dates: start: 20120214
  5. REBETOL [Concomitant]
     Route: 048
     Dates: start: 20120214
  6. LEVOTHYROXINE SODIUM [Concomitant]
     Route: 048
  7. PEG-INTRON [Concomitant]
     Indication: HEPATITIS C
     Route: 058
     Dates: end: 20120214
  8. ZETIA [Concomitant]
     Route: 048
  9. TELAVIC (TELAPREVIR) [Suspect]
     Indication: HEPATITIS C
     Route: 048
     Dates: start: 20120124, end: 20120213
  10. REBETOL [Concomitant]
     Indication: HEPATITIS C
     Route: 048
     Dates: end: 20120214

REACTIONS (4)
  - HYPERURICAEMIA [None]
  - BLOOD CREATININE INCREASED [None]
  - WHITE BLOOD CELL COUNT DECREASED [None]
  - HAEMOGLOBIN DECREASED [None]
